FAERS Safety Report 9972761 (Version 4)
Quarter: 2014Q2

REPORT INFORMATION
  Report Type: Spontaneous
  Country: US (occurrence: US)
  Receive Date: 20140306
  Receipt Date: 20140403
  Transmission Date: 20141212
  Serious: Yes (Death, Hospitalization, Other)
  Sender: FDA-Public Use
  Company Number: US-PFIZER INC-2014048181

PATIENT
  Age: 76 Year
  Sex: Male

DRUGS (5)
  1. SUTENT [Suspect]
     Indication: MALIGNANT NEOPLASM OF RENAL PELVIS
     Dosage: 37.5 MG, DAILY
     Route: 048
     Dates: start: 20131216, end: 201403
  2. FLUOXETINE HCL [Concomitant]
     Dosage: UNK
  3. IPRATROPIUM- ALBUTEROL [Concomitant]
     Dosage: UNK
  4. AMLODIPINE BESYLATE [Concomitant]
     Dosage: UNK
  5. ASPIRIN LOW DOSE [Concomitant]

REACTIONS (2)
  - Rectal haemorrhage [Fatal]
  - Haematochezia [Unknown]
